FAERS Safety Report 4951674-8 (Version None)
Quarter: 2006Q1

REPORT INFORMATION
  Report Type: 
  Country: None (occurrence: None)
  Receive Date: 20060322
  Receipt Date: 20060322
  Transmission Date: 20060701
  Serious: Yes (Other)
  Sender: FDA-Public Use
  Company Number: None

PATIENT
  Sex: Female
  Weight: 68.0396 kg

DRUGS (2)
  1. TRIPHASIL-21 [Suspect]
     Indication: CONTRACEPTION
     Dosage: 1 PILL - VARIOUS DOSAGE-  DAILY   PO
     Route: 048
     Dates: start: 19910901, end: 19990601
  2. TRIPHASIL-21 [Suspect]
     Indication: CONTRACEPTION
     Dosage: 1 PILL - VARIOUS DOSAGE-  DAILY   PO
     Route: 048
     Dates: start: 20050501, end: 20051117

REACTIONS (11)
  - ANOREXIA [None]
  - ANXIETY [None]
  - DEPRESSION [None]
  - DIARRHOEA [None]
  - DRUG EXPOSURE BEFORE PREGNANCY [None]
  - LOSS OF LIBIDO [None]
  - MUSCLE SPASMS [None]
  - NAUSEA [None]
  - POLYMENORRHOEA [None]
  - UTERINE SPASM [None]
  - WEIGHT DECREASED [None]
